FAERS Safety Report 5852017-8 (Version None)
Quarter: 2008Q3

REPORT INFORMATION
  Report Type: 
  Country: None (occurrence: None)
  Receive Date: 20080820
  Receipt Date: 20080814
  Transmission Date: 20090109
  Serious: Yes (Other)
  Sender: FDA-Public Use
  Company Number: US-PFIZER INC-2008068405

PATIENT
  Sex: Female
  Weight: 63.636 kg

DRUGS (8)
  1. LIPITOR [Suspect]
     Indication: BLOOD CHOLESTEROL INCREASED
  2. CRESTOR [Suspect]
     Dates: start: 20080201, end: 20080101
  3. ZOCOR [Suspect]
     Dates: start: 20070801, end: 20070101
  4. ACETYLSALICYLIC ACID SRT [Concomitant]
  5. ALLEGRA [Concomitant]
  6. MONTELUKAST SODIUM [Concomitant]
  7. MULTI-VITAMINS [Concomitant]
  8. CALCIUM WITH VITAMIN D [Concomitant]

REACTIONS (21)
  - ADRENAL INSUFFICIENCY [None]
  - BALANCE DISORDER [None]
  - BLOOD CREATINE PHOSPHOKINASE INCREASED [None]
  - CHROMATURIA [None]
  - CUSHING'S SYNDROME [None]
  - DYSSTASIA [None]
  - FACET JOINT SYNDROME [None]
  - FEELING ABNORMAL [None]
  - HYPOPITUITARISM [None]
  - HYPOTHALAMO-PITUITARY DISORDER [None]
  - INTERVERTEBRAL DISC DEGENERATION [None]
  - INTERVERTEBRAL DISC PROTRUSION [None]
  - LUNG NEOPLASM [None]
  - MEMORY IMPAIRMENT [None]
  - MUSCLE STRAIN [None]
  - MUSCULAR WEAKNESS [None]
  - MYALGIA [None]
  - NERVE COMPRESSION [None]
  - PAIN [None]
  - URINARY INCONTINENCE [None]
  - WEIGHT INCREASED [None]
